FAERS Safety Report 10074684 (Version 1)
Quarter: 2014Q2

REPORT INFORMATION
  Report Type: Spontaneous
  Country: US (occurrence: US)
  Receive Date: 20140414
  Receipt Date: 20140414
  Transmission Date: 20141212
  Serious: Yes (Hospitalization, Other)
  Sender: FDA-Public Use
  Company Number: US-MERCK-1404USA006293

PATIENT
  Age: 58 Year
  Sex: Male

DRUGS (4)
  1. NOXAFIL [Suspect]
     Indication: PROPHYLAXIS
     Dosage: 400 MG, BID
     Route: 048
     Dates: start: 20121224, end: 20140325
  2. NOXAFIL [Suspect]
     Indication: PROPHYLAXIS
     Dosage: 400 MG, QD
     Route: 048
     Dates: start: 20140326, end: 20140327
  3. ANTIVIRAL (UNSPECIFIED) [Concomitant]
  4. ANTIMICROBIAL (UNSPECIFIED) [Concomitant]

REACTIONS (11)
  - Pneumonia respiratory syncytial viral [Recovering/Resolving]
  - Dyspnoea [Recovering/Resolving]
  - Endotracheal intubation [Unknown]
  - Renal failure [Recovering/Resolving]
  - Aphasia [Recovering/Resolving]
  - Anuria [Recovering/Resolving]
  - Depressed mood [Recovering/Resolving]
  - Adverse event [Recovering/Resolving]
  - Fluid overload [Recovering/Resolving]
  - Gastrointestinal tube insertion [Unknown]
  - Dialysis [Unknown]
